FAERS Safety Report 22639579 (Version 2)
Quarter: 2023Q2

REPORT INFORMATION
  Report Type: Report from Study
  Country: US (occurrence: US)
  Receive Date: 20230626
  Receipt Date: 20230628
  Transmission Date: 20230721
  Serious: No
  Sender: FDA-Public Use
  Company Number: US-002147023-NVSC2023US143515

PATIENT
  Sex: Female

DRUGS (1)
  1. KESIMPTA [Suspect]
     Active Substance: OFATUMUMAB
     Indication: Relapsing multiple sclerosis
     Dosage: 20 MG, QMO
     Route: 058
     Dates: start: 20230525

REACTIONS (9)
  - Muscular weakness [Unknown]
  - Tremor [Unknown]
  - Headache [Unknown]
  - Eye pain [Unknown]
  - Paraesthesia [Unknown]
  - Injury associated with device [Unknown]
  - Product storage error [Unknown]
  - Accidental exposure to product [Unknown]
  - Therapeutic response shortened [Unknown]
